FAERS Safety Report 10162840 (Version 1)
Quarter: 2014Q2

REPORT INFORMATION
  Report Type: Spontaneous
  Country: US (occurrence: US)
  Receive Date: 20140509
  Receipt Date: 20140509
  Transmission Date: 20141212
  Serious: No
  Sender: FDA-Public Use
  Company Number: US-TEVA-480265USA

PATIENT
  Sex: 0

DRUGS (1)
  1. COPAXONE 40MG [Suspect]
     Indication: MULTIPLE SCLEROSIS

REACTIONS (4)
  - Injection site pain [Unknown]
  - Injection site haemorrhage [Unknown]
  - Injection site mass [Unknown]
  - Fear [Unknown]
